FAERS Safety Report 12672178 (Version 3)
Quarter: 2016Q4

REPORT INFORMATION
  Report Type: Spontaneous
  Country: US (occurrence: US)
  Receive Date: 20160822
  Receipt Date: 20161004
  Transmission Date: 20170207
  Serious: Yes (Hospitalization, Other)
  Sender: FDA-Public Use
  Company Number: US-009507513-1608USA008491

PATIENT
  Age: 42 Year
  Sex: Female
  Weight: 59 kg

DRUGS (7)
  1. GABAPENTIN. [Concomitant]
     Active Substance: GABAPENTIN
     Dosage: 600 MG, HS (AT BEDTIME)
  2. CLONAZEPAM. [Concomitant]
     Active Substance: CLONAZEPAM
     Dosage: 0.5 MG, BID
  3. MIRENA [Concomitant]
     Active Substance: LEVONORGESTREL
     Dosage: 20 MG, HS (AT BED TIME)
  4. BELSOMRA [Suspect]
     Active Substance: SUVOREXANT
     Indication: INSOMNIA
     Dosage: 20 MG, HS
     Route: 048
     Dates: start: 20151031, end: 20151101
  5. ATENOLOL. [Concomitant]
     Active Substance: ATENOLOL
     Dosage: 50 MG, QD
  6. QUETIAPINE FUMARATE. [Concomitant]
     Active Substance: QUETIAPINE FUMARATE
     Dosage: 300 MG, HS (AT BED TIME)
  7. CLONAZEPAM. [Concomitant]
     Active Substance: CLONAZEPAM
     Dosage: 2 MG, QD

REACTIONS (6)
  - Bipolar disorder [Recovered/Resolved]
  - Contusion [Unknown]
  - Product use issue [Unknown]
  - Balance disorder [Unknown]
  - Gait disturbance [Unknown]
  - Amnesia [Unknown]

NARRATIVE: CASE EVENT DATE: 2015
